FAERS Safety Report 9974956 (Version 1)
Quarter: 2014Q1

REPORT INFORMATION
  Report Type: Report from Study
  Country: US (occurrence: US)
  Receive Date: 20140306
  Receipt Date: 20140306
  Transmission Date: 20141002
  Serious: No
  Sender: FDA-Public Use
  Company Number: US-ABBVIE-13P-163-1160044-00

PATIENT
  Age: 44 Year
  Sex: Female

DRUGS (9)
  1. HUMIRA [Suspect]
     Indication: RHEUMATOID ARTHRITIS
     Dates: start: 20130927
  2. EFFEXOR [Concomitant]
     Indication: DEPRESSION
     Dosage: 225 MG DAILY
  3. ADVAIR [Concomitant]
     Indication: ASTHMA
  4. PRO-AIR [Concomitant]
     Indication: ASTHMA
     Dosage: DAILY
  5. DEPO-PROVERA [Concomitant]
     Indication: CONTRACEPTION
  6. XANAX [Concomitant]
     Indication: ANXIETY
  7. HYDROCODONE [Concomitant]
     Indication: PAIN
  8. ALBUTEROL [Concomitant]
     Indication: ASTHMA
  9. ATROVENT [Concomitant]
     Indication: ASTHMA

REACTIONS (1)
  - Rash [Not Recovered/Not Resolved]
